FAERS Safety Report 22167106 (Version 1)
Quarter: 2023Q2

REPORT INFORMATION
  Report Type: Spontaneous
  Country: US (occurrence: None)
  Receive Date: 20230403
  Receipt Date: 20230403
  Transmission Date: 20230722
  Serious: No
  Sender: FDA-Public Use
  Company Number: 2023A071655

PATIENT
  Age: 21501 Day
  Sex: Female
  Weight: 127 kg

DRUGS (1)
  1. FASENRA [Suspect]
     Active Substance: BENRALIZUMAB
     Indication: Asthma
     Dosage: 30MG/ML EVERY FOUR WEEKS
     Route: 058
     Dates: start: 20230123

REACTIONS (4)
  - Confusional state [Unknown]
  - Mobility decreased [Unknown]
  - Needle track marks [Unknown]
  - Device leakage [Unknown]

NARRATIVE: CASE EVENT DATE: 20230324
